FAERS Safety Report 6839034-6 (Version None)
Quarter: 2010Q3

REPORT INFORMATION
  Report Type: 
  Country: None (occurrence: None)
  Receive Date: 20100714
  Receipt Date: 20100406
  Transmission Date: 20110219
  Serious: Yes (Other)
  Sender: FDA-Public Use
  Company Number: US-ASTRAZENECA-2009SE18292

PATIENT
  Age: 48 Year
  Sex: Female
  Weight: 89.8 kg

DRUGS (18)
  1. SEROQUEL [Suspect]
     Indication: BIPOLAR DISORDER
     Route: 048
     Dates: start: 20051101, end: 20080501
  2. SEROQUEL [Suspect]
     Indication: DEPRESSION
     Route: 048
     Dates: start: 20051101, end: 20080501
  3. SEROQUEL [Suspect]
     Route: 048
     Dates: start: 20051126
  4. SEROQUEL [Suspect]
     Route: 048
     Dates: start: 20051126
  5. DEPAKOTE [Concomitant]
     Indication: BIPOLAR DISORDER
     Dates: start: 20030101
  6. DEPAKOTE [Concomitant]
     Indication: DEPRESSION
     Dates: start: 20030101
  7. LEXAPRO [Concomitant]
     Dates: start: 20041021
  8. TRAZODONE HCL [Concomitant]
     Dates: start: 20030101
  9. ZYPREXA [Concomitant]
     Dates: start: 20030101
  10. AMBIEN [Concomitant]
     Dates: start: 20060119
  11. AMBIEN [Concomitant]
     Dosage: 10 MG HS PRN
     Route: 048
     Dates: start: 20060822
  12. PRAVACHOL [Concomitant]
     Dates: start: 20060101
  13. LOTREL [Concomitant]
     Dosage: 10/20 MG CAP DAILY
     Route: 048
     Dates: start: 20050101
  14. METFORMIN [Concomitant]
     Dosage: 850 MG DISPENSED, 1000 MG BID
     Dates: start: 20051207
  15. PRAVASTATIN [Concomitant]
     Route: 048
     Dates: start: 20060822
  16. HYDROCHLOROTHIAZIDE [Concomitant]
     Route: 048
     Dates: start: 20060822
  17. CARBAMAZEPINE [Concomitant]
     Route: 048
     Dates: start: 20060822
  18. DIPHENHYDRAMINE [Concomitant]
     Route: 048
     Dates: start: 20060822

REACTIONS (5)
  - ADVERSE DRUG REACTION [None]
  - DIABETES MELLITUS [None]
  - DIABETES MELLITUS INADEQUATE CONTROL [None]
  - DIABETIC NEUROPATHY [None]
  - TARDIVE DYSKINESIA [None]
